FAERS Safety Report 20723521 (Version 3)
Quarter: 2022Q2

REPORT INFORMATION
  Report Type: Report from Study
  Country: IT (occurrence: None)
  Receive Date: 20220419
  Receipt Date: 20220610
  Transmission Date: 20220721
  Serious: Yes (Life-Threatening, Hospitalization)
  Sender: FDA-Public Use
  Company Number: IT-ROCHE-3077794

PATIENT
  Age: 74 Year
  Sex: Female
  Weight: 56 kg

DRUGS (10)
  1. COBIMETINIB [Suspect]
     Active Substance: COBIMETINIB
     Indication: Ovarian epithelial cancer
     Dosage: 16/MAR/2022, RECEIVED MOST RECENT DOSE 60 MG
     Route: 048
     Dates: start: 20220126
  2. ESOMEPRAZOLE [Concomitant]
     Active Substance: ESOMEPRAZOLE
     Route: 048
     Dates: start: 2010
  3. NEBIVOLOL HYDROCHLORIDE [Concomitant]
     Active Substance: NEBIVOLOL HYDROCHLORIDE
     Indication: Hypertension
     Route: 048
     Dates: start: 1970
  4. AMLODIPINE BESYLATE\OLMESARTAN MEDOXOMIL [Concomitant]
     Active Substance: AMLODIPINE BESYLATE\OLMESARTAN MEDOXOMIL
     Indication: Hypertension
     Route: 048
     Dates: start: 1970, end: 20220329
  5. CIPRALEX [Concomitant]
     Active Substance: ESCITALOPRAM OXALATE
     Indication: Mixed anxiety and depressive disorder
     Route: 048
     Dates: start: 2009
  6. CHOLECALCIFEROL [Concomitant]
     Active Substance: CHOLECALCIFEROL
     Route: 048
     Dates: start: 2010
  7. CARDIOASPIRINA [Concomitant]
     Active Substance: ASPIRIN
     Route: 048
     Dates: start: 2010
  8. XANAX [Concomitant]
     Active Substance: ALPRAZOLAM
     Indication: Anxiety
     Route: 048
     Dates: start: 2009
  9. MAORIS [Concomitant]
     Dosage: 20/10
     Dates: start: 20220330
  10. ASPIRIN\CLOPIDOGREL [Concomitant]
     Active Substance: ASPIRIN\CLOPIDOGREL
     Dosage: 75/100
     Dates: start: 20220330

REACTIONS (1)
  - Electrocardiogram repolarisation abnormality [Recovered/Resolved]

NARRATIVE: CASE EVENT DATE: 20220324
